FAERS Safety Report 19352071 (Version 1)
Quarter: 2021Q2

REPORT INFORMATION
  Report Type: Report from Study
  Country: TH (occurrence: TH)
  Receive Date: 20210601
  Receipt Date: 20210601
  Transmission Date: 20210717
  Serious: Yes (Death, Other)
  Sender: FDA-Public Use
  Company Number: TH-SEATTLE GENETICS-2020SGN03780

PATIENT
  Sex: Male

DRUGS (1)
  1. BRENTUXIMAB VEDOTIN [Suspect]
     Active Substance: BRENTUXIMAB VEDOTIN
     Indication: HODGKIN^S DISEASE
     Dosage: 100 MILLIGRAM, Q3WEEKS
     Route: 050
     Dates: start: 20200602

REACTIONS (6)
  - Weight decreased [Unknown]
  - Malaise [Unknown]
  - White blood cell count decreased [Unknown]
  - Hodgkin^s disease [Fatal]
  - Renal function test abnormal [Unknown]
  - Pyrexia [Unknown]
